FAERS Safety Report 10384495 (Version 1)
Quarter: 2014Q3

REPORT INFORMATION
  Report Type: Spontaneous
  Country: AT (occurrence: AT)
  Receive Date: 20140814
  Receipt Date: 20140814
  Transmission Date: 20150326
  Serious: Yes (Hospitalization)
  Sender: FDA-Public Use
  Company Number: PHHY2014AT100435

PATIENT
  Age: 28 Month
  Sex: Female
  Weight: 10 kg

DRUGS (2)
  1. PARACETAMOL [Suspect]
     Active Substance: ACETAMINOPHEN
     Indication: RESPIRATORY TRACT INFECTION
     Dosage: 80 MG/KG, DAILY
     Route: 054
  2. CODEIN [Concomitant]
     Active Substance: CODEINE
     Indication: RESPIRATORY TRACT INFECTION

REACTIONS (14)
  - Somnolence [Recovered/Resolved]
  - Encephalopathy [Recovered/Resolved]
  - Toxicity to various agents [Recovered/Resolved]
  - Brain oedema [Recovered/Resolved]
  - Liver disorder [Recovered/Resolved]
  - Transaminases increased [Recovered/Resolved]
  - Neurological decompensation [Recovered/Resolved]
  - Hyperlactacidaemia [Recovering/Resolving]
  - Hyperammonaemia [Recovering/Resolving]
  - Hepatic function abnormal [Recovered/Resolved]
  - Hepatotoxicity [Recovered/Resolved]
  - Disturbance in attention [Recovered/Resolved]
  - Hypoglycaemia [Recovering/Resolving]
  - Acute hepatic failure [Recovered/Resolved]
